FAERS Safety Report 12758808 (Version 2)
Quarter: 2016Q4

REPORT INFORMATION
  Report Type: Spontaneous
  Country: PE (occurrence: PE)
  Receive Date: 20160919
  Receipt Date: 20161227
  Transmission Date: 20170207
  Serious: Yes (Disabling, Other)
  Sender: FDA-Public Use
  Company Number: PE-PFIZER INC-2016429038

PATIENT
  Age: 73 Year
  Sex: Female

DRUGS (1)
  1. XALATAN [Suspect]
     Active Substance: LATANOPROST
     Indication: GLAUCOMA
     Dosage: 1 GTT, 1X/DAY
     Dates: start: 2007

REACTIONS (4)
  - Walking disability [Not Recovered/Not Resolved]
  - Cataract [Unknown]
  - Accident [Unknown]
  - Bronchial disorder [Not Recovered/Not Resolved]

NARRATIVE: CASE EVENT DATE: 201608
